FAERS Safety Report 25623169 (Version 1)
Quarter: 2025Q3

REPORT INFORMATION
  Report Type: Spontaneous
  Country: IN (occurrence: IN)
  Receive Date: 20250730
  Receipt Date: 20250730
  Transmission Date: 20251020
  Serious: Yes (Death, Life-Threatening, Hospitalization)
  Sender: PFIZER
  Company Number: IN-PFIZER INC-PV202500090854

PATIENT
  Age: 19 Year
  Sex: Male

DRUGS (17)
  1. METHYLPREDNISOLONE SODIUM SUCCINATE [Suspect]
     Active Substance: METHYLPREDNISOLONE SODIUM SUCCINATE
     Indication: Pulmonary toxicity
     Route: 042
  2. ACETYLCYSTEINE [Suspect]
     Active Substance: ACETYLCYSTEINE
     Indication: Pulmonary toxicity
  3. VITAMIN E [Suspect]
     Active Substance: .ALPHA.-TOCOPHEROL
     Indication: Pulmonary toxicity
     Route: 042
  4. SODIUM CHLORIDE [Suspect]
     Active Substance: SODIUM CHLORIDE
     Indication: Pulmonary toxicity
  5. SODIUM CHLORIDE [Suspect]
     Active Substance: SODIUM CHLORIDE
     Indication: Prophylaxis
  6. VITAMIN C [Suspect]
     Active Substance: ASCORBIC ACID
     Indication: Pulmonary toxicity
  7. VITAMIN C [Suspect]
     Active Substance: ASCORBIC ACID
     Indication: Prophylaxis
  8. ALUMINUM HYDROXIDE\DIMETHICONE\MAGNESIUM HYDROXIDE [Suspect]
     Active Substance: ALUMINUM HYDROXIDE\DIMETHICONE\MAGNESIUM HYDROXIDE
     Indication: Pulmonary toxicity
  9. ALUMINUM HYDROXIDE\DIMETHICONE\MAGNESIUM HYDROXIDE [Suspect]
     Active Substance: ALUMINUM HYDROXIDE\DIMETHICONE\MAGNESIUM HYDROXIDE
     Indication: Prophylaxis
  10. ALUMINUM HYDROXIDE\MAGNESIUM HYDROXIDE\OXETHAZAINE [Suspect]
     Active Substance: ALUMINUM HYDROXIDE\MAGNESIUM HYDROXIDE\OXETHAZAINE
     Indication: Pulmonary toxicity
  11. ALUMINUM HYDROXIDE\MAGNESIUM HYDROXIDE\OXETHAZAINE [Suspect]
     Active Substance: ALUMINUM HYDROXIDE\MAGNESIUM HYDROXIDE\OXETHAZAINE
     Indication: Prophylaxis
  12. XYLOCAINE VISCOUS [Suspect]
     Active Substance: LIDOCAINE HYDROCHLORIDE
     Indication: Pulmonary toxicity
  13. XYLOCAINE VISCOUS [Suspect]
     Active Substance: LIDOCAINE HYDROCHLORIDE
     Indication: Prophylaxis
  14. XYLOCAINE VISCOUS [Suspect]
     Active Substance: LIDOCAINE HYDROCHLORIDE
     Indication: Ulcer
  15. TRANEXAMIC ACID [Concomitant]
     Active Substance: TRANEXAMIC ACID
     Indication: Haematemesis
  16. DIAZEPAM [Concomitant]
     Active Substance: DIAZEPAM
  17. PHENYTOIN [Concomitant]
     Active Substance: PHENYTOIN
     Indication: Haematemesis

REACTIONS (2)
  - Drug ineffective for unapproved indication [Fatal]
  - Off label use [Unknown]
